FAERS Safety Report 13772527 (Version 1)
Quarter: 2017Q3

REPORT INFORMATION
  Report Type: Spontaneous
  Country: US (occurrence: US)
  Receive Date: 20170720
  Receipt Date: 20170720
  Transmission Date: 20171127
  Serious: Yes (Hospitalization, Other)
  Sender: FDA-Public Use
  Company Number: US-GLAXOSMITHKLINE-US2017109672

PATIENT
  Sex: Female

DRUGS (4)
  1. BENLYSTA [Suspect]
     Active Substance: BELIMUMAB
     Indication: PAIN
  2. PERCOCET [Concomitant]
     Active Substance: ACETAMINOPHEN\OXYCODONE HYDROCHLORIDE
  3. BENLYSTA [Suspect]
     Active Substance: BELIMUMAB
     Indication: SYSTEMIC LUPUS ERYTHEMATOSUS
     Dosage: UNK
     Route: 042
     Dates: start: 2013
  4. BENLYSTA [Suspect]
     Active Substance: BELIMUMAB
     Indication: FIBROMYALGIA
     Dosage: UNK UNK, Z
     Route: 042
     Dates: start: 201703

REACTIONS (16)
  - Toothache [Recovering/Resolving]
  - Sleep terror [Unknown]
  - Product use in unapproved indication [Unknown]
  - Hysterectomy [Recovered/Resolved]
  - Condition aggravated [Unknown]
  - Sleep disorder [Not Recovered/Not Resolved]
  - Insomnia [Not Recovered/Not Resolved]
  - Diverticulitis [Not Recovered/Not Resolved]
  - Dental operation [Recovering/Resolving]
  - Nightmare [Unknown]
  - Bronchitis [Unknown]
  - Malaise [Unknown]
  - Therapeutic response unexpected [Unknown]
  - Stress [Not Recovered/Not Resolved]
  - Migraine [Not Recovered/Not Resolved]
  - Fatigue [Not Recovered/Not Resolved]

NARRATIVE: CASE EVENT DATE: 2013
